FAERS Safety Report 13988964 (Version 1)
Quarter: 2017Q3

REPORT INFORMATION
  Report Type: Spontaneous
  Country: US (occurrence: US)
  Receive Date: 20170919
  Receipt Date: 20170919
  Transmission Date: 20171128
  Serious: Yes (Other)
  Sender: FDA-Public Use
  Company Number: None

PATIENT
  Sex: Female
  Weight: 78.3 kg

DRUGS (14)
  1. POTASSIUM [Concomitant]
     Active Substance: POTASSIUM
  2. CRANBERRY. [Concomitant]
     Active Substance: CRANBERRY
  3. TRINTELLIX [Suspect]
     Active Substance: VORTIOXETINE HYDROBROMIDE
     Indication: DEPRESSION
     Dosage: ?          QUANTITY:1 TABLET(S);?
     Route: 048
     Dates: start: 20170822, end: 20170919
  4. METOPROLOL. [Concomitant]
     Active Substance: METOPROLOL
  5. ASPIRIN. [Concomitant]
     Active Substance: ASPIRIN
  6. ZOFRAN [Concomitant]
     Active Substance: ONDANSETRON HYDROCHLORIDE
  7. TRANXENE T-TAB [Concomitant]
     Active Substance: CLORAZEPATE DIPOTASSIUM
  8. PREGNENOLONE [Concomitant]
     Active Substance: PREGNENOLONE
  9. KRILL OIL [Concomitant]
     Active Substance: DIETARY SUPPLEMENT
  10. COQ 10 [Concomitant]
     Active Substance: UBIDECARENONE
  11. MOBIC [Concomitant]
     Active Substance: MELOXICAM
  12. HCTZ [Concomitant]
     Active Substance: HYDROCHLOROTHIAZIDE
  13. TRAMADOL. [Concomitant]
     Active Substance: TRAMADOL
  14. PROTONIX [Concomitant]
     Active Substance: PANTOPRAZOLE SODIUM

REACTIONS (3)
  - Tremor [None]
  - Energy increased [None]
  - Aggression [None]

NARRATIVE: CASE EVENT DATE: 20170915
